FAERS Safety Report 24108576 (Version 1)
Quarter: 2024Q3

REPORT INFORMATION
  Report Type: Spontaneous
  Country: AU (occurrence: AU)
  Receive Date: 20240718
  Receipt Date: 20240718
  Transmission Date: 20241016
  Serious: Yes (Other)
  Sender: SANDOZ
  Company Number: AU-ASTELLAS-2024US016678

PATIENT
  Age: 53 Year
  Sex: Female

DRUGS (4)
  1. FLUDARABINE PHOSPHATE [Suspect]
     Active Substance: FLUDARABINE PHOSPHATE
     Indication: Acute myeloid leukaemia recurrent
     Dosage: UNK
     Route: 065
     Dates: start: 20231201
  2. GRANULOCYTE COLONY-STIMULATING FACTOR NOS [Suspect]
     Active Substance: GRANULOCYTE COLONY-STIMULATING FACTOR NOS
     Indication: Acute myeloid leukaemia recurrent
     Dosage: UNK
     Route: 065
  3. IDARUBICIN HYDROCHLORIDE [Suspect]
     Active Substance: IDARUBICIN HYDROCHLORIDE
     Indication: Acute myeloid leukaemia recurrent
     Dosage: UNK
     Route: 065
  4. XOSPATA [Suspect]
     Active Substance: GILTERITINIB
     Indication: Acute myeloid leukaemia recurrent
     Dosage: UNK
     Route: 065
     Dates: start: 20231222

REACTIONS (4)
  - Subdural haematoma [Unknown]
  - Brain neoplasm [Unknown]
  - Cerebral fungal infection [Unknown]
  - Chloroma [Unknown]

NARRATIVE: CASE EVENT DATE: 20240101
